FAERS Safety Report 4553300-9 (Version None)
Quarter: 2005Q1

REPORT INFORMATION
  Report Type: 
  Country: None (occurrence: None)
  Receive Date: 20050113
  Receipt Date: 20050107
  Transmission Date: 20050727
  Serious: Yes (Death)
  Sender: FDA-Public Use
  Company Number: 2005-124007-NL

PATIENT
  Age: 28 Year
  Sex: Male

DRUGS (8)
  1. MIRTAZAPINE [Suspect]
     Indication: DEPRESSIVE SYMPTOM
     Route: 048
     Dates: start: 20041025, end: 20041031
  2. MIRTAZAPINE [Suspect]
     Indication: INSOMNIA
     Route: 048
     Dates: start: 20041025, end: 20041031
  3. MIRTAZAPINE [Suspect]
     Indication: DEPRESSIVE SYMPTOM
     Route: 048
     Dates: start: 20041101
  4. MIRTAZAPINE [Suspect]
     Indication: INSOMNIA
     Route: 048
     Dates: start: 20041101
  5. ZOLPIDEM TARTRATE [Suspect]
     Dosage: 10 MG
  6. ALPRAZOLAM [Suspect]
     Dosage: 0.5 MG
  7. CARBAMAZEPINE [Suspect]
     Dosage: 300 MG
  8. CHLORPROMAZINE [Suspect]
     Indication: SLEEP DISORDER
     Dosage: 25 MG
     Dates: start: 20041101

REACTIONS (1)
  - DEATH [None]
